FAERS Safety Report 11626757 (Version 1)
Quarter: 2015Q4

REPORT INFORMATION
  Report Type: Report from Study
  Country: DE (occurrence: DE)
  Receive Date: 20151013
  Receipt Date: 20151013
  Transmission Date: 20160304
  Serious: Yes (Other)
  Sender: FDA-Public Use
  Company Number: DE-ABBVIE-15K-062-1434881-00

PATIENT
  Sex: Female
  Weight: 95 kg

DRUGS (3)
  1. MTX [Suspect]
     Active Substance: METHOTREXATE SODIUM
     Indication: AXIAL SPONDYLOARTHRITIS
     Route: 048
     Dates: start: 201302, end: 2015
  2. HUMIRA [Suspect]
     Active Substance: ADALIMUMAB
     Indication: AXIAL SPONDYLOARTHRITIS
     Route: 058
     Dates: start: 201401, end: 201501
  3. CELEBREX [Concomitant]
     Active Substance: CELECOXIB
     Indication: AXIAL SPONDYLOARTHRITIS
     Route: 048
     Dates: start: 201310, end: 2015

REACTIONS (5)
  - Extrasystoles [Unknown]
  - Palpitations [Unknown]
  - Syncope [Unknown]
  - Dyspnoea exertional [Unknown]
  - Arrhythmia [Unknown]
